FAERS Safety Report 9525753 (Version 5)
Quarter: 2013Q4

REPORT INFORMATION
  Report Type: Spontaneous
  Country: BR (occurrence: BR)
  Receive Date: 20130915
  Receipt Date: 20131016
  Transmission Date: 20140711
  Serious: Yes (Other)
  Sender: FDA-Public Use
  Company Number: BR-AMGEN-BRASP2013062340

PATIENT
  Age: 39 Year
  Sex: Female
  Weight: 67 kg

DRUGS (4)
  1. ENBREL [Suspect]
     Indication: RHEUMATOID ARTHRITIS
     Dosage: 50 MG, WEEKLY
     Route: 058
     Dates: start: 20130812
  2. ENBREL [Suspect]
     Route: 058
  3. METHOTREXATE [Concomitant]
     Dosage: 1 CAPSULE OF 15 MG, 1X/WEEK
     Route: 048
  4. FOLIC ACID [Concomitant]
     Dosage: 1 TABLET OF 5 MG, ONCE WEEKLY
     Route: 048

REACTIONS (14)
  - Injection site pruritus [Unknown]
  - Injection site oedema [Unknown]
  - Injection site hypersensitivity [Unknown]
  - Injection site erythema [Unknown]
  - Injection site rash [Unknown]
  - Nervousness [Unknown]
  - Irritability [Unknown]
  - Injection site phlebitis [Unknown]
  - Injection site infection [Unknown]
  - Erythema [Unknown]
  - Injection site warmth [Unknown]
  - Cellulitis [Unknown]
  - Injection site swelling [Unknown]
  - Injection site pain [Unknown]
